FAERS Safety Report 14590736 (Version 2)
Quarter: 2018Q4

REPORT INFORMATION
  Report Type: Report from Study
  Country: IT (occurrence: IT)
  Receive Date: 20180302
  Receipt Date: 20181105
  Transmission Date: 20190204
  Serious: Yes (Hospitalization, Other)
  Sender: FDA-Public Use
  Company Number: IT-BIOVITRUM-2012IT0419

PATIENT
  Age: 8 Year
  Sex: Male
  Weight: 26 kg

DRUGS (3)
  1. ORFADIN [Suspect]
     Active Substance: NITISINONE
     Indication: TYROSINAEMIA
     Dosage: 0.83 MG/KG
     Dates: start: 20120215
  2. ORFADIN [Suspect]
     Active Substance: NITISINONE
     Dosage: 0.88 MG/KG
     Dates: start: 20150624, end: 20170529
  3. ORFADIN [Suspect]
     Active Substance: NITISINONE
     Dosage: 0.77 MG/KG
     Dates: start: 20170529, end: 20171103

REACTIONS (5)
  - Liver transplant [Recovered/Resolved]
  - Amino acid level increased [Not Recovered/Not Resolved]
  - Renal impairment [Unknown]
  - Hepatic cancer [Recovered/Resolved]
  - Succinylacetone increased [Recovered/Resolved]

NARRATIVE: CASE EVENT DATE: 20171103
